FAERS Safety Report 13461073 (Version 2)
Quarter: 2017Q2

REPORT INFORMATION
  Report Type: Spontaneous
  Country: IT (occurrence: IT)
  Receive Date: 20170420
  Receipt Date: 20170421
  Transmission Date: 20170830
  Serious: Yes (Hospitalization, Other)
  Sender: FDA-Public Use
  Company Number: IT-ASTRAZENECA-2017SE39852

PATIENT
  Age: 35388 Day
  Sex: Female
  Weight: 65 kg

DRUGS (9)
  1. SEROQUEL [Suspect]
     Active Substance: QUETIAPINE FUMARATE
     Indication: PSYCHOMOTOR HYPERACTIVITY
     Route: 048
     Dates: start: 20170320
  2. ENTUMIN [Interacting]
     Active Substance: CLOTHIAPINE
     Indication: PSYCHOMOTOR HYPERACTIVITY
     Dosage: STRENGTH 100 MG/ML, DAILY
     Route: 048
     Dates: start: 201703, end: 20170404
  3. LASIX [Concomitant]
     Active Substance: FUROSEMIDE
     Indication: DIURETIC THERAPY
     Route: 048
  4. IMOVANE [Interacting]
     Active Substance: ZOPICLONE
     Indication: PSYCHOMOTOR HYPERACTIVITY
     Route: 048
     Dates: start: 20170403, end: 20170403
  5. BISOPROLOL HEMIFUMARATE [Concomitant]
     Active Substance: BISOPROLOL FUMARATE
     Indication: HYPERTENSION
     Dosage: 1.25MG UNKNOWN
     Route: 048
  6. ENALAPRIL MALEATE. [Concomitant]
     Active Substance: ENALAPRIL MALEATE
     Indication: HYPERTENSION
     Dosage: 20.0MG UNKNOWN
     Route: 048
  7. LANOXIN [Concomitant]
     Active Substance: DIGOXIN
     Indication: CARDIAC FAILURE
     Dosage: 0.125MG UNKNOWN
     Route: 048
  8. MESALAZINE [Concomitant]
     Active Substance: MESALAMINE
     Dosage: 800.0MG UNKNOWN
     Route: 048
  9. PANTORC [Concomitant]
     Active Substance: PANTOPRAZOLE SODIUM
     Dosage: 20.0MG UNKNOWN
     Route: 048

REACTIONS (9)
  - Sopor [Recovered/Resolved]
  - Cardiac failure [Unknown]
  - Atrial fibrillation [Unknown]
  - Agitation [Unknown]
  - Aggression [Unknown]
  - Hypertension [Unknown]
  - Iron deficiency anaemia [Unknown]
  - Diverticulum intestinal [Unknown]
  - Drug interaction [Unknown]

NARRATIVE: CASE EVENT DATE: 20170404
